FAERS Safety Report 15209391 (Version 1)
Quarter: 2018Q3

REPORT INFORMATION
  Report Type: Spontaneous
  Country: US (occurrence: US)
  Receive Date: 20180727
  Receipt Date: 20180727
  Transmission Date: 20181010
  Serious: No
  Sender: FDA-Public Use
  Company Number: US-SA-2018SA174066

PATIENT
  Age: 87 Year
  Sex: Female

DRUGS (1)
  1. LANTUS [Suspect]
     Active Substance: INSULIN GLARGINE
     Dosage: 90 U, QD

REACTIONS (2)
  - Hypersensitivity [Not Recovered/Not Resolved]
  - Device issue [Unknown]
